FAERS Safety Report 25185089 (Version 1)
Quarter: 2025Q2

REPORT INFORMATION
  Report Type: Spontaneous
  Country: JP (occurrence: JP)
  Receive Date: 20250410
  Receipt Date: 20250410
  Transmission Date: 20250716
  Serious: Yes (Hospitalization, Other)
  Sender: ALEXION PHARMACEUTICALS
  Company Number: JP-ASTRAZENECA-250032645_013120_P_1

PATIENT
  Age: 79 Year
  Weight: 65 kg

DRUGS (10)
  1. DURVALUMAB [Suspect]
     Active Substance: DURVALUMAB
     Indication: Bile duct cancer
  2. CISPLATIN [Suspect]
     Active Substance: CISPLATIN
     Indication: Bile duct cancer
  3. GEMCITABINE [Suspect]
     Active Substance: GEMCITABINE
     Indication: Bile duct cancer
  4. GEMCITABINE [Suspect]
     Active Substance: GEMCITABINE
     Dosage: 1600 MILLIGRAM, Q3W
  5. ATORVASTATIN [Concomitant]
     Active Substance: ATORVASTATIN
  6. MAGNESIUM SULFATE [Concomitant]
     Active Substance: MAGNESIUM SULFATE
     Indication: Bile duct cancer
     Route: 065
  7. GRANISETRON [Concomitant]
     Active Substance: GRANISETRON
     Indication: Bile duct cancer
  8. DEXAMETHASONE SODIUM PHOSPHATE [Concomitant]
     Active Substance: DEXAMETHASONE SODIUM PHOSPHATE
     Indication: Bile duct cancer
     Route: 065
  9. DECADRON [Concomitant]
     Active Substance: DEXAMETHASONE
     Indication: Bile duct cancer
  10. FOSNETUPITANT CHLORIDE HYDROCHLORIDE [Concomitant]
     Active Substance: FOSNETUPITANT CHLORIDE HYDROCHLORIDE
     Indication: Bile duct cancer

REACTIONS (2)
  - Pulmonary toxicity [Recovering/Resolving]
  - Neutrophil count decreased [Unknown]
